FAERS Safety Report 4807222-6 (Version None)
Quarter: 2005Q4

REPORT INFORMATION
  Report Type: 
  Country: None (occurrence: None)
  Receive Date: 20051020
  Receipt Date: 20051020
  Transmission Date: 20060501
  Serious: Yes (Hospitalization)
  Sender: FDA-Public Use
  Company Number: None

PATIENT
  Age: 62 Year
  Sex: Male
  Weight: 95.2554 kg

DRUGS (13)
  1. AMIODARONE 200MG [Suspect]
     Indication: VENTRICULAR FIBRILLATION
     Dosage: 100MG DAILY PO
     Dates: start: 20040101, end: 20050810
  2. ALBUT/IPRATROP-COMBIVENT [Concomitant]
  3. ALBUTEROL [Concomitant]
  4. PREDNISONE TAB [Concomitant]
  5. MONTELUKAST SODIUM [Concomitant]
  6. GUAIFENESIN [Concomitant]
  7. VERAPAMIL HCL [Concomitant]
  8. CITALOPRAM HYDROBROMIDE [Concomitant]
  9. RANITIDINE HCL [Concomitant]
  10. PRIMIDONE [Concomitant]
  11. METHIMAZOLE [Concomitant]
  12. ALPRAZOLAM [Concomitant]
  13. CAMPHOR [Concomitant]

REACTIONS (7)
  - DYSPNOEA EXERTIONAL [None]
  - FATIGUE [None]
  - HYPERHIDROSIS [None]
  - HYPERTHYROIDISM [None]
  - PACEMAKER COMPLICATION [None]
  - VENTRICULAR TACHYCARDIA [None]
  - WEIGHT DECREASED [None]
